FAERS Safety Report 9715757 (Version 2)
Quarter: 2013Q4

REPORT INFORMATION
  Report Type: Spontaneous
  Country: CA (occurrence: CA)
  Receive Date: 20131127
  Receipt Date: 20131230
  Transmission Date: 20140711
  Serious: Yes (Other)
  Sender: FDA-Public Use
  Company Number: CA-BAYER-2013-140331

PATIENT
  Age: 81 Year
  Sex: Female
  Weight: 82.99 kg

DRUGS (7)
  1. CIPRO XL [Suspect]
     Indication: CYSTITIS
     Dosage: 500 MG, QD
     Dates: start: 20130408
  2. PRAMIPEXOLE [Concomitant]
     Dosage: 0.25 MG, UNK
     Route: 048
  3. ATORVASTATIN [Concomitant]
     Route: 048
  4. COVERSYL [Concomitant]
     Dosage: 8 MG, BID
     Route: 048
  5. DILTIAZEM [Concomitant]
     Dosage: 120 MG, UNK
     Route: 048
  6. ACETYLSALICYLIC ACID [Concomitant]
     Dosage: 80 MG, UNK
  7. LYRICA [Concomitant]

REACTIONS (4)
  - Feeling abnormal [None]
  - Skin burning sensation [None]
  - Scratch [None]
  - Pain of skin [None]
